FAERS Safety Report 12618566 (Version 2)
Quarter: 2016Q3

REPORT INFORMATION
  Report Type: Spontaneous
  Country: DE (occurrence: DE)
  Receive Date: 20160803
  Receipt Date: 20160901
  Transmission Date: 20161109
  Serious: Yes (Other)
  Sender: FDA-Public Use
  Company Number: DE-AMGEN-DEUSP2016099099

PATIENT
  Age: 60 Year
  Sex: Male
  Weight: 87 kg

DRUGS (2)
  1. BLINCYTO [Suspect]
     Active Substance: BLINATUMOMAB
     Dosage: 28 MUG, QD
     Route: 042
     Dates: start: 20160720, end: 20160726
  2. BLINCYTO [Suspect]
     Active Substance: BLINATUMOMAB
     Indication: ACUTE LYMPHOCYTIC LEUKAEMIA
     Dosage: 9 MUG, QD
     Route: 042
     Dates: start: 20160714, end: 20160720

REACTIONS (7)
  - White blood cell count increased [Not Recovered/Not Resolved]
  - Pyrexia [Unknown]
  - Muscular weakness [Unknown]
  - Somnolence [Unknown]
  - Blast cell count increased [Unknown]
  - Feeling abnormal [Unknown]
  - Drug ineffective [Unknown]

NARRATIVE: CASE EVENT DATE: 201607
